FAERS Safety Report 24892270 (Version 1)
Quarter: 2025Q1

REPORT INFORMATION
  Report Type: Spontaneous
  Country: US (occurrence: US)
  Receive Date: 20250128
  Receipt Date: 20250128
  Transmission Date: 20250409
  Serious: No
  Sender: CSL BEHRING
  Company Number: US-BEH-2025193326

PATIENT
  Age: 72 Year
  Sex: Female
  Weight: 45.9 kg

DRUGS (1)
  1. MIRCERA [Suspect]
     Active Substance: METHOXY POLYETHYLENE GLYCOL-EPOETIN BETA

REACTIONS (4)
  - Drug hypersensitivity [Recovered/Resolved]
  - Abdominal pain [Recovered/Resolved]
  - Feeling abnormal [Recovered/Resolved]
  - Gastrointestinal disorder [Recovered/Resolved]

NARRATIVE: CASE EVENT DATE: 20241209
